FAERS Safety Report 9659394 (Version 1)
Quarter: 2013Q4

REPORT INFORMATION
  Report Type: Spontaneous
  Country: DE (occurrence: DE)
  Receive Date: 20131031
  Receipt Date: 20131031
  Transmission Date: 20140711
  Serious: Yes (Other)
  Sender: FDA-Public Use
  Company Number: DE-DRREDDYS-GER/GER/13/0035211

PATIENT
  Age: 22 Year
  Sex: Female
  Weight: 58 kg

DRUGS (9)
  1. RAMIPRIL [Suspect]
     Indication: GLOMERULONEPHRITIS
     Route: 048
  2. TORASEMIDE [Suspect]
     Indication: GLOMERULONEPHRITIS
     Dosage: 20-40MG/D
     Route: 048
  3. FUROSEMIDE [Suspect]
     Indication: GLOMERULONEPHRITIS
     Dosage: 40-80 MG/D
     Route: 048
  4. PROGRAF [Suspect]
     Indication: NEPHROTIC SYNDROME
     Route: 048
  5. PREDNISOLONE [Suspect]
     Indication: IMMUNE THROMBOCYTOPENIC PURPURA
     Route: 048
  6. FLUVASTATIN [Suspect]
     Indication: HYPERCHOLESTEROLAEMIA
     Route: 048
  7. OMEPRAZOLE [Concomitant]
     Indication: GASTRITIS PROPHYLAXIS
     Route: 048
  8. IDEOS [Concomitant]
     Indication: OSTEOPOROSIS PROPHYLAXIS
     Route: 048
  9. FOLIC ACID [Concomitant]
     Indication: PROPHYLAXIS OF NEURAL TUBE DEFECT
     Route: 048

REACTIONS (4)
  - Premature rupture of membranes [Unknown]
  - Premature delivery [Unknown]
  - Caesarean section [Unknown]
  - Exposure during pregnancy [Unknown]
